FAERS Safety Report 4922924-9 (Version None)
Quarter: 2006Q1

REPORT INFORMATION
  Report Type: 
  Country: None (occurrence: None)
  Receive Date: 20060224
  Receipt Date: 20050413
  Transmission Date: 20060701
  Serious: Yes (Death, Hospitalization)
  Sender: FDA-Public Use
  Company Number: US-MERCK-0504USA02004

PATIENT
  Age: 62 Year
  Sex: Male
  Weight: 106 kg

DRUGS (2)
  1. VIOXX [Suspect]
     Indication: ARTHRITIS
     Route: 048
     Dates: start: 20001006, end: 20011008
  2. PREVACID [Concomitant]
     Route: 065

REACTIONS (15)
  - ACROCHORDON [None]
  - ACUTE RESPIRATORY FAILURE [None]
  - ARTHRALGIA [None]
  - ATELECTASIS [None]
  - BACK PAIN [None]
  - BLADDER NEOPLASM [None]
  - CEREBROVASCULAR ACCIDENT [None]
  - DIZZINESS [None]
  - HYPERTENSION [None]
  - MIXED HYPERLIPIDAEMIA [None]
  - MYALGIA [None]
  - PROTEINURIA [None]
  - RENAL CYST [None]
  - RETROGRADE AMNESIA [None]
  - TRANSIENT ISCHAEMIC ATTACK [None]
